FAERS Safety Report 14969551 (Version 1)
Quarter: 2018Q2

REPORT INFORMATION
  Report Type: Spontaneous
  Country: US (occurrence: US)
  Receive Date: 20180512
  Receipt Date: 20180512
  Transmission Date: 20180711
  Serious: No
  Sender: FDA-Public Use
  Company Number: None

PATIENT
  Age: 68 Year
  Sex: Female
  Weight: 63 kg

DRUGS (8)
  1. REPATHA [Suspect]
     Active Substance: EVOLOCUMAB
     Indication: BLOOD CHOLESTEROL INCREASED
     Dosage: 1 INJECTION BIWEEKLY SUBCUTANEOUS?
     Route: 058
     Dates: start: 20170801, end: 20180401
  2. LASIX [Concomitant]
     Active Substance: FUROSEMIDE
  3. CLONIDINE. [Concomitant]
     Active Substance: CLONIDINE
  4. DOXAZOSIN [Concomitant]
     Active Substance: DOXAZOSIN\DOXAZOSIN MESYLATE
  5. LOSARTAN. [Concomitant]
     Active Substance: LOSARTAN
  6. CARVEDILOL CR [Concomitant]
     Active Substance: CARVEDILOL
  7. ASPIRIN. [Concomitant]
     Active Substance: ASPIRIN
  8. VITAMIN D3 [Concomitant]
     Active Substance: CHOLECALCIFEROL

REACTIONS (5)
  - Back pain [None]
  - Swelling [None]
  - Musculoskeletal pain [None]
  - Sinonasal obstruction [None]
  - Epistaxis [None]

NARRATIVE: CASE EVENT DATE: 20180301
